FAERS Safety Report 8315799-1 (Version None)
Quarter: 2012Q2

REPORT INFORMATION
  Report Type: 
  Country: None (occurrence: None)
  Receive Date: 20120427
  Receipt Date: 20120424
  Transmission Date: 20120825
  Serious: Yes (Other)
  Sender: FDA-Public Use
  Company Number: GB-AMGEN-GBRSP2012020689

PATIENT
  Age: 37 Year
  Sex: Male

DRUGS (8)
  1. CISPLATIN [Concomitant]
     Indication: TESTIS CANCER
     Dosage: 40 MG, UNK
     Route: 042
     Dates: start: 20120319
  2. NEUPOGEN [Suspect]
     Indication: CHEMOTHERAPY
     Dosage: 300 MG, UNK
     Route: 058
     Dates: start: 20120324, end: 20120327
  3. BLEOMYCIN SULFATE [Concomitant]
     Indication: TESTIS CANCER
     Dosage: 30000 UNIT, UNK
     Route: 042
     Dates: start: 20120227
  4. PLATINUM [Concomitant]
     Indication: TESTIS CANCER
  5. APREPITANT [Concomitant]
     Indication: SUPPORTIVE CARE
     Dosage: UNK
     Dates: start: 20120319
  6. DEXAMETHASONE [Concomitant]
     Indication: SUPPORTIVE CARE
     Dosage: UNK
     Dates: start: 20120319
  7. DOMPERIDONE [Concomitant]
     Indication: SUPPORTIVE CARE
     Dosage: UNK
     Dates: start: 20120319
  8. ETOPOSIDE [Concomitant]
     Indication: TESTIS CANCER
     Dosage: 200 MG, UNK
     Route: 042
     Dates: start: 20120227

REACTIONS (2)
  - BONE PAIN [None]
  - ANGIOEDEMA [None]
